FAERS Safety Report 4863018-0 (Version None)
Quarter: 2005Q4

REPORT INFORMATION
  Report Type: 
  Country: None (occurrence: None)
  Receive Date: 20051219
  Receipt Date: 20051209
  Transmission Date: 20060501
  Serious: Yes (Life-Threatening)
  Sender: FDA-Public Use
  Company Number: S05-USA-04566-01

PATIENT
  Age: 30 Year
  Sex: Female

DRUGS (4)
  1. LEXAPRO [Suspect]
  2. LEXAPRO [Suspect]
  3. STRATTERA [Suspect]
     Dates: start: 20040317, end: 20040605
  4. WELLBUTRIN [Concomitant]

REACTIONS (1)
  - AUTOIMMUNE HEPATITIS [None]
